FAERS Safety Report 15076046 (Version 1)
Quarter: 2018Q2

REPORT INFORMATION
  Report Type: Spontaneous
  Country: FR (occurrence: FR)
  Receive Date: 20180627
  Receipt Date: 20180627
  Transmission Date: 20180711
  Serious: Yes (Other)
  Sender: FDA-Public Use
  Company Number: FR-LPDUSPRD-20181121

PATIENT
  Age: 61 Year
  Sex: Female

DRUGS (3)
  1. INEXIUM [Concomitant]
     Active Substance: ESOMEPRAZOLE
     Dosage: UNKNOWN
     Route: 048
  2. FERINJECT [Suspect]
     Active Substance: FERRIC CARBOXYMALTOSE
     Dosage: 1 GM
     Route: 042
     Dates: start: 20180504, end: 20180504
  3. EPREX [Suspect]
     Active Substance: ERYTHROPOIETIN
     Dosage: 1 DOSAGE FORM (40000 IU/ML)
     Route: 058
     Dates: start: 20180504, end: 20180504

REACTIONS (2)
  - Porphyria [Recovered/Resolved]
  - Photosensitivity reaction [Unknown]

NARRATIVE: CASE EVENT DATE: 20180506
